FAERS Safety Report 5256978-X (Version None)
Quarter: 2007Q1

REPORT INFORMATION
  Report Type: 
  Country: None (occurrence: None)
  Receive Date: 20070307
  Receipt Date: 20070302
  Transmission Date: 20070707
  Serious: Yes (Other)
  Sender: FDA-Public Use
  Company Number: FR-BRISTOL-MYERS SQUIBB COMPANY-13663653

PATIENT
  Age: 53 Year
  Sex: Male
  Weight: 69 kg

DRUGS (3)
  1. REYATAZ [Suspect]
     Indication: HIV INFECTION
     Dosage: 16-NOV-2006 DOSE DECREASED TO 200 MG/DAY
     Route: 048
     Dates: start: 20041230
  2. FOSAMPRENAVIR CALCIUM [Concomitant]
     Dates: start: 20041230
  3. RITONAVIR [Concomitant]
     Dates: start: 20041230

REACTIONS (4)
  - BACK PAIN [None]
  - HAEMATURIA [None]
  - NEPHROLITHIASIS [None]
  - RENAL COLIC [None]
